FAERS Safety Report 14835035 (Version 2)
Quarter: 2019Q2

REPORT INFORMATION
  Report Type: Report from Study
  Country: US (occurrence: US)
  Receive Date: 20180501
  Receipt Date: 20190405
  Transmission Date: 20190711
  Serious: No
  Sender: FDA-Public Use
  Company Number: PHEH2018US016785

PATIENT
  Sex: Male

DRUGS (3)
  1. ENTRESTO [Suspect]
     Active Substance: SACUBITRIL\VALSARTAN
     Dosage: 1 DF(SACUBITRIL 24 MG/VALSARTAN 26 MG), QD
     Route: 048
  2. ENTRESTO [Suspect]
     Active Substance: SACUBITRIL\VALSARTAN
     Indication: CARDIAC FAILURE
     Dosage: 1 DF(SACUBITRIL 49 MG/VALSARTAN 51 MG), QD
     Route: 048
  3. ENTRESTO [Suspect]
     Active Substance: SACUBITRIL\VALSARTAN
     Dosage: 0.5 DF(SACUBITRIL 49 MG/VALSARTAN 51 MG), QD
     Route: 048

REACTIONS (7)
  - Dizziness [Unknown]
  - Product prescribing error [Unknown]
  - Nausea [Unknown]
  - Lethargy [Unknown]
  - Wrong technique in product usage process [Unknown]
  - Prescribed underdose [Unknown]
  - Hypotension [Unknown]
